FAERS Safety Report 12195298 (Version 1)
Quarter: 2016Q1

REPORT INFORMATION
  Report Type: Spontaneous
  Country: US (occurrence: None)
  Receive Date: 20160318
  Receipt Date: 20160318
  Transmission Date: 20160526
  Serious: Yes (Other)
  Sender: FDA-Public Use
  Company Number: None

PATIENT
  Age: 25 Year
  Sex: Female
  Weight: 104.42 kg

DRUGS (1)
  1. ESTRADIOL. [Suspect]
     Active Substance: ESTRADIOL
     Indication: ARTIFICIAL MENOPAUSE
     Dosage: 2014, 2015, 2016
     Dates: start: 2014

REACTIONS (4)
  - Application site ulcer [None]
  - Wound infection [None]
  - Application site rash [None]
  - Application site cellulitis [None]
